FAERS Safety Report 4638579-7 (Version None)
Quarter: 2005Q2

REPORT INFORMATION
  Report Type: 
  Country: None (occurrence: None)
  Receive Date: 20050325
  Receipt Date: 20041227
  Transmission Date: 20051028
  Serious: No
  Sender: FDA-Public Use
  Company Number: USA041184114

PATIENT
  Age: 62 Year
  Sex: Female

DRUGS (22)
  1. FORTEO [Suspect]
     Indication: OSTEOPOROSIS
     Dosage: 20 UG/1 DAY
     Dates: start: 20041101
  2. PLAVIX [Concomitant]
  3. MORPHINE [Concomitant]
  4. ATIVAN [Concomitant]
  5. OMEPRAZOLE [Concomitant]
  6. CALCIUM CARBONATE [Concomitant]
  7. CALCITRIOL [Concomitant]
  8. CALCITONIN [Concomitant]
  9. FOLIC ACID [Concomitant]
  10. SYNTHROID [Concomitant]
  11. PRIMIDONE [Concomitant]
  12. VITAMIN B-12 [Concomitant]
  13. AMBIEN [Concomitant]
  14. COMPAZINE [Concomitant]
  15. LASIX [Concomitant]
  16. BENEMID [Concomitant]
  17. CELEXA [Concomitant]
  18. MORPHINE [Concomitant]
  19. IMITREX [Concomitant]
  20. ALBUTEROL W/ IPRATROPIUM [Concomitant]
  21. MACROBID [Concomitant]
  22. ACETAMINOPHEN [Concomitant]

REACTIONS (12)
  - BALANCE DISORDER [None]
  - CONTUSION [None]
  - DIZZINESS [None]
  - HEADACHE [None]
  - HEART RATE INCREASED [None]
  - HYPOTENSION [None]
  - MALAISE [None]
  - PAIN TRAUMA ACTIVATED [None]
  - PETECHIAE [None]
  - PNEUMONIA [None]
  - RIB FRACTURE [None]
  - SPINAL COMPRESSION FRACTURE [None]
